FAERS Safety Report 8152228-5 (Version None)
Quarter: 2012Q1

REPORT INFORMATION
  Report Type: 
  Country: None (occurrence: None)
  Receive Date: 20120221
  Receipt Date: 20120210
  Transmission Date: 20120608
  Serious: Yes (Hospitalization)
  Sender: FDA-Public Use
  Company Number: FI-AMGEN-FINSP2012009644

PATIENT
  Age: 48 Year
  Sex: Male

DRUGS (1)
  1. ENBREL [Suspect]
     Indication: ANKYLOSING SPONDYLITIS
     Dosage: 50 MG, WEEKLY
     Dates: start: 20100301, end: 20120201

REACTIONS (4)
  - TOOTH EXTRACTION [None]
  - PYREXIA [None]
  - C-REACTIVE PROTEIN INCREASED [None]
  - ORAL INFECTION [None]
